FAERS Safety Report 24008880 (Version 1)
Quarter: 2024Q2

REPORT INFORMATION
  Report Type: Spontaneous
  Country: US (occurrence: US)
  Receive Date: 20240625
  Receipt Date: 20240625
  Transmission Date: 20240717
  Serious: No
  Sender: FDA-Public Use
  Company Number: US-BANNER LIFE SCIENCES, LLC-2023BAN000154

PATIENT

DRUGS (1)
  1. BAFIERTAM [Suspect]
     Active Substance: MONOMETHYL FUMARATE
     Indication: Product used for unknown indication
     Dosage: UNK
     Route: 065

REACTIONS (4)
  - Burning sensation [Unknown]
  - Erythema [Unknown]
  - Swelling face [Unknown]
  - Lip swelling [Unknown]
